FAERS Safety Report 13400190 (Version 2)
Quarter: 2017Q2

REPORT INFORMATION
  Report Type: Spontaneous
  Country: PR (occurrence: PR)
  Receive Date: 20170404
  Receipt Date: 20170406
  Transmission Date: 20170830
  Serious: No
  Sender: FDA-Public Use
  Company Number: PR-PFIZER INC-2017144689

PATIENT
  Age: 31 Year
  Sex: Female
  Weight: 94.8 kg

DRUGS (1)
  1. NEURONTIN [Suspect]
     Active Substance: GABAPENTIN
     Indication: PAIN
     Dosage: 400 MG, DAILY (100 MG IN THE MORNING AND 300 MG AT NIGHT)
     Route: 048
     Dates: start: 20170119, end: 201702

REACTIONS (2)
  - Diarrhoea [Recovered/Resolved]
  - Drug ineffective for unapproved indication [Unknown]

NARRATIVE: CASE EVENT DATE: 201701
